FAERS Safety Report 10522509 (Version 1)
Quarter: 2014Q4

REPORT INFORMATION
  Report Type: Report from Study
  Country: US (occurrence: US)
  Receive Date: 20141016
  Receipt Date: 20141016
  Transmission Date: 20150528
  Serious: Yes (Death, Life-Threatening, Hospitalization, Other)
  Sender: FDA-Public Use
  Company Number: US-BRISTOL-MYERS SQUIBB COMPANY-21461363

PATIENT
  Age: 77 Year
  Sex: Male

DRUGS (20)
  1. METHYLPREDNISOLONE. [Suspect]
     Active Substance: METHYLPREDNISOLONE
  2. PREDNISONE. [Concomitant]
     Active Substance: PREDNISONE
     Indication: COLITIS ULCERATIVE
  3. PROSCAR [Concomitant]
     Active Substance: FINASTERIDE
  4. PROTONIX [Concomitant]
     Active Substance: PANTOPRAZOLE SODIUM
  5. FERROUS SULFATE [Concomitant]
     Active Substance: FERROUS SULFATE\FERROUS SULFATE, DRIED
  6. XARELTO [Concomitant]
     Active Substance: RIVAROXABAN
  7. COUMADIN [Suspect]
     Active Substance: WARFARIN SODIUM
     Route: 065
  8. SODIUM BICARBONATE. [Concomitant]
     Active Substance: SODIUM BICARBONATE
  9. VITAMIN B12 [Concomitant]
     Active Substance: CYANOCOBALAMIN
  10. PROBIOTICA [Concomitant]
     Active Substance: PROBIOTICS NOS
  11. ULORIC [Concomitant]
     Active Substance: FEBUXOSTAT
  12. FOLIC ACID. [Concomitant]
     Active Substance: FOLIC ACID
  13. LOMOTIL [Concomitant]
     Active Substance: ATROPINE SULFATE\DIPHENOXYLATE HYDROCHLORIDE
  14. HUMIRA [Suspect]
     Active Substance: ADALIMUMAB
     Indication: COLITIS ULCERATIVE
     Dosage: 40MG SOL^N FOR INJ PREFILLED PEN?80MG,1 IN 2 WK:17APR-17APR14?40MG,L IN 2 WK:1MAY14-ONG
     Route: 058
     Dates: start: 201404, end: 201404
  15. VITAMIN B6 [Concomitant]
     Active Substance: PYRIDOXINE HYDROCHLORIDE
  16. AMIODARONE HCL [Concomitant]
     Active Substance: AMIODARONE HYDROCHLORIDE
  17. SYNTHROID [Concomitant]
     Active Substance: LEVOTHYROXINE SODIUM
  18. MILK THISTLE [Concomitant]
     Active Substance: MILK THISTLE
  19. VITAMIN D [Concomitant]
     Active Substance: CHOLECALCIFEROL
  20. METOPROLOL SUCCINATE. [Concomitant]
     Active Substance: METOPROLOL SUCCINATE

REACTIONS (18)
  - Colitis [Unknown]
  - Vomiting [Unknown]
  - Acute kidney injury [Unknown]
  - Hiccups [Unknown]
  - Lower gastrointestinal haemorrhage [Unknown]
  - Cardio-respiratory arrest [Fatal]
  - Nausea [Unknown]
  - Occult blood positive [Unknown]
  - White blood cell count increased [Unknown]
  - Asthenia [Unknown]
  - International normalised ratio increased [Unknown]
  - Blood pressure decreased [Unknown]
  - Dehydration [Unknown]
  - Ileus [Unknown]
  - Fatigue [Unknown]
  - Decreased appetite [Unknown]
  - Sepsis [Unknown]
  - Cellulitis [Recovered/Resolved]

NARRATIVE: CASE EVENT DATE: 2014
